FAERS Safety Report 25226776 (Version 1)
Quarter: 2025Q2

REPORT INFORMATION
  Report Type: Spontaneous
  Country: US (occurrence: None)
  Receive Date: 20250422
  Receipt Date: 20250422
  Transmission Date: 20250717
  Serious: Yes (Other)
  Sender: FDA-CTU
  Company Number: None

PATIENT
  Age: 61 Year
  Sex: Female
  Weight: 60.75 kg

DRUGS (10)
  1. CLINDAMYCIN [Suspect]
     Active Substance: CLINDAMYCIN
     Dates: start: 20250418, end: 20250419
  2. ZYRTEC [Concomitant]
     Active Substance: CETIRIZINE HYDROCHLORIDE
  3. Flonase nasak spray [Concomitant]
  4. occasional Ventolin inhaler [Concomitant]
  5. Tylenol as needed [Concomitant]
  6. Armra Colostrum [Concomitant]
  7. VITAMIN C [Concomitant]
     Active Substance: ASCORBIC ACID
  8. ZINC [Concomitant]
     Active Substance: ZINC
  9. VITAMIN D [Concomitant]
     Active Substance: VITAMIN D NOS
  10. ^Brain Bright^ capsules [Concomitant]

REACTIONS (4)
  - Erythema [None]
  - Swelling face [None]
  - Feeling hot [None]
  - Therapy cessation [None]

NARRATIVE: CASE EVENT DATE: 20250419
